FAERS Safety Report 23597630 (Version 1)
Quarter: 2024Q1

REPORT INFORMATION
  Report Type: Spontaneous
  Country: NO (occurrence: NO)
  Receive Date: 20240305
  Receipt Date: 20240305
  Transmission Date: 20240409
  Serious: Yes (Hospitalization)
  Sender: FDA-Public Use
  Company Number: None

PATIENT
  Age: 73 Year
  Sex: Female

DRUGS (3)
  1. EPIRUBICIN HYDROCHLORIDE [Suspect]
     Active Substance: EPIRUBICIN HYDROCHLORIDE
     Indication: Breast cancer
     Dosage: 90 MG/M2, ACCORDING TO THE EC90 PROTOCOL. ROUTE OF ADMIN (FREE TEXT): INTRAVEN?S BRUK, INTRAVESIKAL
     Route: 065
     Dates: start: 20240105, end: 20240105
  2. CYCLOPHOSPHAMIDE [Suspect]
     Active Substance: CYCLOPHOSPHAMIDE
     Indication: Breast cancer
     Dosage: 600 MG/M2, ACCORDING TO THE EC90 PROTOCOL.
     Route: 041
     Dates: start: 20240105, end: 20240105
  3. ZIEXTENZO [Suspect]
     Active Substance: PEGFILGRASTIM-BMEZ
     Indication: Breast cancer
     Dosage: UNK
     Route: 065

REACTIONS (3)
  - Product availability issue [Recovered/Resolved]
  - Antibiotic therapy [Recovered/Resolved]
  - Febrile neutropenia [Recovered/Resolved]

NARRATIVE: CASE EVENT DATE: 20240120
